FAERS Safety Report 14083860 (Version 1)
Quarter: 2017Q4

REPORT INFORMATION
  Report Type: Spontaneous
  Country: KR (occurrence: KR)
  Receive Date: 20171013
  Receipt Date: 20171013
  Transmission Date: 20180321
  Serious: Yes (Death, Other)
  Sender: FDA-Public Use
  Company Number: KR-009507513-1508KOR013954

PATIENT

DRUGS (2)
  1. CASPOFUNGIN ACETATE. [Suspect]
     Active Substance: CASPOFUNGIN ACETATE
     Indication: ANTIFUNGAL TREATMENT
     Dosage: LOADING NAD MAINTENANCE DOSE: 63.1?7.7 MG/M2 AND 47.2?6.0 MG/M2
  2. VORICONAZOLE. [Suspect]
     Active Substance: VORICONAZOLE
     Indication: ANTIFUNGAL TREATMENT
     Dosage: LOADING NAD MAINTENANCE DOSE: 5.9?0.5 MG/KG AND 3.6?0.60 MG/KG

REACTIONS (3)
  - Treatment failure [Unknown]
  - Hepatic enzyme increased [Unknown]
  - Aspergillus infection [Fatal]
